FAERS Safety Report 5749543-9 (Version None)
Quarter: 2008Q2

REPORT INFORMATION
  Report Type: 
  Country: None (occurrence: None)
  Receive Date: 20080527
  Receipt Date: 20080519
  Transmission Date: 20081010
  Serious: Yes (Other)
  Sender: FDA-Public Use
  Company Number: US-WYE-H04170908

PATIENT
  Age: 58 Year
  Sex: Female
  Weight: 87.62 kg

DRUGS (4)
  1. EFFEXOR XR [Suspect]
     Dosage: ^225 MG THEN TAPERED OFF ^
     Route: 048
     Dates: start: 20070101, end: 20080101
  2. EFFEXOR XR [Suspect]
     Route: 048
     Dates: start: 20080401
  3. KLONOPIN [Concomitant]
     Indication: ANXIETY
     Dosage: ^ 4 MG QD NOW 5 MG QD ^
  4. KLONOPIN [Concomitant]
     Indication: INSOMNIA

REACTIONS (8)
  - BALANCE DISORDER [None]
  - BLOOD PRESSURE INCREASED [None]
  - DEPENDENCE [None]
  - DIZZINESS [None]
  - DRUG WITHDRAWAL SYNDROME [None]
  - NAUSEA [None]
  - PALPITATIONS [None]
  - WEIGHT INCREASED [None]
